FAERS Safety Report 7020183-7 (Version None)
Quarter: 2010Q3

REPORT INFORMATION
  Report Type: 
  Country: None (occurrence: None)
  Receive Date: 20100927
  Receipt Date: 20100916
  Transmission Date: 20110219
  Serious: Yes (Hospitalization, Disabling)
  Sender: FDA-Public Use
  Company Number: 2009AC000458

PATIENT
  Age: 65 Year
  Sex: Female

DRUGS (43)
  1. DIGOXIN [Suspect]
     Dosage: 250 MCG;PO
     Route: 048
     Dates: start: 20060101
  2. DIGOXIN [Suspect]
     Dosage: 0.125 MG;QD;PO
     Route: 048
     Dates: start: 20051101
  3. COZAAR [Concomitant]
  4. THEO-DUR [Concomitant]
  5. HYDROCODONE BITARTRATE [Concomitant]
  6. ALBUTEROL [Concomitant]
  7. SPIRIVA [Concomitant]
  8. ACIPHEX [Concomitant]
  9. SINGULAIR [Concomitant]
  10. FUROSEMIDE [Concomitant]
  11. SIMVASTATIN [Concomitant]
  12. SPIRONOLACTONE [Concomitant]
  13. GABAPENTIN [Concomitant]
  14. POTASSIUM [Concomitant]
  15. METOLAZONE [Concomitant]
  16. NOVOLOG [Concomitant]
  17. COREG [Concomitant]
  18. GLIMEPIRIDE [Concomitant]
  19. MUNCINEX [Concomitant]
  20. ASPIRIN [Concomitant]
  21. OMEPRAZOLE [Concomitant]
  22. CARVEDILOL [Concomitant]
  23. SYMBICORT [Concomitant]
  24. LISINOPRIL [Concomitant]
  25. INSULIN [Concomitant]
  26. LASIX [Concomitant]
  27. THEOPHYLLINE [Concomitant]
  28. COZAAR [Concomitant]
  29. ZANTAC [Concomitant]
  30. SYMBICORT [Concomitant]
  31. POLYGLYCOL [Concomitant]
  32. OXYGEN [Concomitant]
  33. MUCINEX [Concomitant]
  34. GABAPENTIN [Concomitant]
  35. ASPIRIN [Concomitant]
  36. CRESTOR [Concomitant]
  37. CARVEDILOL [Concomitant]
  38. PRILOSEC [Concomitant]
  39. HYDROCODONE [Concomitant]
  40. ASPIRIN [Concomitant]
  41. NITROGLYCERIN [Concomitant]
  42. NEURONTIN [Concomitant]
  43. ADVAIR DISKUS 100/50 [Concomitant]

REACTIONS (44)
  - AMNESIA [None]
  - ANGINA PECTORIS [None]
  - ANXIETY [None]
  - ARTERIOSCLEROSIS CORONARY ARTERY [None]
  - ARTHRALGIA [None]
  - BRONCHITIS [None]
  - CARDIAC FAILURE CONGESTIVE [None]
  - CHRONIC OBSTRUCTIVE PULMONARY DISEASE [None]
  - CONDITION AGGRAVATED [None]
  - CONFUSIONAL STATE [None]
  - CONSTIPATION [None]
  - CORONARY ARTERY DISEASE [None]
  - DECREASED APPETITE [None]
  - DIABETIC NEUROPATHY [None]
  - DISTURBANCE IN ATTENTION [None]
  - DYSLIPIDAEMIA [None]
  - DYSPEPSIA [None]
  - ECONOMIC PROBLEM [None]
  - EMPHYSEMA [None]
  - GASTRITIS [None]
  - HEART RATE IRREGULAR [None]
  - HEPATITIS VIRAL [None]
  - HYPERTENSION [None]
  - HYPERTENSIVE HEART DISEASE [None]
  - HYPOTENSION [None]
  - MOANING [None]
  - MULTIPLE INJURIES [None]
  - MUSCULAR WEAKNESS [None]
  - OSTEOPOROSIS [None]
  - PERICARDIAL EFFUSION [None]
  - PERIPHERAL ARTERIAL OCCLUSIVE DISEASE [None]
  - PLEURAL EFFUSION [None]
  - PNEUMONIA [None]
  - PRODUCTIVE COUGH [None]
  - PULMONARY HYPERTENSION [None]
  - REFUSAL OF TREATMENT BY PATIENT [None]
  - RENAL FAILURE [None]
  - RENAL FAILURE ACUTE [None]
  - SCREAMING [None]
  - SILENT MYOCARDIAL INFARCTION [None]
  - SPINAL COLUMN STENOSIS [None]
  - TREMOR [None]
  - UNEVALUABLE EVENT [None]
  - WEIGHT DECREASED [None]
